FAERS Safety Report 11098163 (Version 1)
Quarter: 2015Q2

REPORT INFORMATION
  Report Type: Spontaneous
  Country: US (occurrence: US)
  Receive Date: 20150507
  Receipt Date: 20150507
  Transmission Date: 20150821
  Serious: No
  Sender: FDA-Public Use
  Company Number: US-ABBVIE-14K-163-1218543-00

PATIENT
  Age: 36 Year
  Sex: Male

DRUGS (4)
  1. CYCLOSPORINE. [Suspect]
     Active Substance: CYCLOSPORINE
     Indication: PRODUCT USED FOR UNKNOWN INDICATION
  2. H.P. ACTHAR [Concomitant]
     Active Substance: CORTICOTROPIN
     Indication: NEPHROTIC SYNDROME
     Dates: start: 20131116
  3. LYRICA [Concomitant]
     Active Substance: PREGABALIN
     Indication: PRODUCT USED FOR UNKNOWN INDICATION
  4. H.P. ACTHAR [Concomitant]
     Active Substance: CORTICOTROPIN
     Indication: GLOMERULONEPHRITIS

REACTIONS (3)
  - Oedema [Recovered/Resolved]
  - Muscle twitching [Unknown]
  - Dyspnoea [Unknown]
